FAERS Safety Report 9393343 (Version 1)
Quarter: 2013Q3

REPORT INFORMATION
  Report Type: Spontaneous
  Country: FR (occurrence: FR)
  Receive Date: 20130710
  Receipt Date: 20130710
  Transmission Date: 20140515
  Serious: Yes (Hospitalization)
  Sender: FDA-Public Use
  Company Number: FR-PFIZER INC-2013197487

PATIENT
  Age: 5 Year
  Sex: Male

DRUGS (38)
  1. METHOTREXATE [Suspect]
     Indication: ACUTE LYMPHOCYTIC LEUKAEMIA
     Dosage: 12 MG
     Route: 037
     Dates: start: 20110905
  2. METHOTREXATE [Suspect]
     Dosage: UNK
     Route: 037
     Dates: start: 20120916
  3. ARACYTINE [Suspect]
     Indication: ACUTE LYMPHOCYTIC LEUKAEMIA
     Dosage: UNK
     Route: 037
     Dates: start: 20110916
  4. CYTARABINE [Suspect]
     Indication: ACUTE LYMPHOCYTIC LEUKAEMIA
     Dosage: 4 INJECTIONS WEEKLY
     Route: 042
     Dates: start: 20111019
  5. CYTARABINE [Suspect]
     Dosage: 4 INJECTIONS WEEKLY
     Dates: start: 201202
  6. DOXORUBICIN HCL [Suspect]
     Indication: ACUTE LYMPHOCYTIC LEUKAEMIA
     Dosage: UNK
     Dates: start: 201202
  7. VINCRISTINE SULFATE [Suspect]
     Indication: ACUTE LYMPHOCYTIC LEUKAEMIA
     Dosage: 1.1 MG
     Route: 042
     Dates: start: 20110912, end: 20110912
  8. VINCRISTINE SULFATE [Suspect]
     Dosage: 1.1 MG
     Route: 042
     Dates: start: 20110919, end: 20110919
  9. VINCRISTINE SULFATE [Suspect]
     Dosage: 1.1 MG
     Route: 042
     Dates: start: 20110927, end: 20110927
  10. VINCRISTINE SULFATE [Suspect]
     Dosage: 1.1 MG
     Route: 042
     Dates: start: 20111004, end: 20111004
  11. VINCRISTINE SULFATE [Suspect]
     Dosage: 4 INJECTIONS WEEKLY
     Dates: start: 201202
  12. DAUNORUBICIN HYDROCHLORIDE [Suspect]
     Indication: ACUTE LYMPHOCYTIC LEUKAEMIA
     Dosage: 22 MG
     Route: 042
     Dates: start: 20110912, end: 20110912
  13. DAUNORUBICIN HYDROCHLORIDE [Suspect]
     Dosage: 22 MG
     Route: 042
     Dates: start: 20110919, end: 20110919
  14. DAUNORUBICIN HYDROCHLORIDE [Suspect]
     Dosage: 22 MG
     Route: 042
     Dates: start: 20110927, end: 20110927
  15. DAUNORUBICIN HYDROCHLORIDE [Suspect]
     Dosage: 22 MG
     Route: 042
     Dates: start: 20111004, end: 20111004
  16. DAUNORUBICIN HYDROCHLORIDE [Suspect]
     Dosage: UNK
  17. KIDROLASE [Suspect]
     Indication: ACUTE LYMPHOCYTIC LEUKAEMIA
     Dosage: 7400
     Route: 042
     Dates: start: 20110916, end: 20110916
  18. KIDROLASE [Suspect]
     Dosage: 7400
     Route: 042
     Dates: start: 20110919, end: 20110919
  19. KIDROLASE [Suspect]
     Dosage: 7400
     Route: 042
     Dates: start: 20110922, end: 20110922
  20. KIDROLASE [Suspect]
     Dosage: 7400
     Route: 042
     Dates: start: 20110927, end: 20110927
  21. KIDROLASE [Suspect]
     Dosage: 7400
     Route: 042
     Dates: start: 20110930, end: 20110930
  22. KIDROLASE [Suspect]
     Dosage: 7400
     Route: 042
     Dates: start: 20111004, end: 20111004
  23. KIDROLASE [Suspect]
     Dosage: 7400
     Route: 042
     Dates: start: 20111014, end: 20111014
  24. HYDROCORTISONE HEMISUCCINATE [Suspect]
     Indication: ACUTE LYMPHOCYTIC LEUKAEMIA
     Dosage: UNK
     Route: 037
     Dates: start: 20110916
  25. SOLUPRED [Suspect]
     Indication: ACUTE LYMPHOCYTIC LEUKAEMIA
     Dosage: 22.5 MG, 2X/DAY
     Route: 048
     Dates: start: 20110905, end: 20111003
  26. SOLUPRED [Suspect]
     Dosage: DECREASING DOSES
     Route: 048
     Dates: start: 20111004
  27. MOPRAL [Suspect]
     Dosage: 20 MG (1DF), 1X/DAY
     Dates: start: 20110905
  28. BACTRIM [Suspect]
     Dosage: 1 DF,3X/WEEK
     Route: 048
     Dates: start: 201109
  29. SODIUM BICARBONATE [Suspect]
     Dosage: 4 TIMES DAILY
     Route: 002
     Dates: start: 2011
  30. ZOPHREN [Suspect]
     Indication: ANTIEMETIC SUPPORTIVE CARE
     Dosage: 4 MG, 2X/DAY IF NEEDED
     Route: 048
  31. CYCLOPHOSPHAMIDE [Suspect]
     Indication: ACUTE LYMPHOCYTIC LEUKAEMIA
     Dosage: 2   INJECTIONS
     Dates: start: 20111019
  32. CYCLOPHOSPHAMIDE [Suspect]
     Dosage: 1 INJECTION
     Dates: start: 201202
  33. PURINETHOL [Suspect]
     Indication: ACUTE LYMPHOCYTIC LEUKAEMIA
     Dosage: UNK
     Dates: start: 20111019
  34. DEXAMETHASONE SODIUM PHOSPHATE [Suspect]
     Indication: ACUTE LYMPHOCYTIC LEUKAEMIA
     Dosage: UNK
     Route: 048
     Dates: start: 201202
  35. LANVIS [Suspect]
     Indication: ACUTE LYMPHOCYTIC LEUKAEMIA
     Dosage: UNK
     Route: 048
     Dates: start: 201202
  36. ERWINASE [Suspect]
     Indication: ACUTE LYMPHOCYTIC LEUKAEMIA
     Dosage: 6 INJECTIONS
     Dates: start: 201202
  37. ROCEPHINE [Concomitant]
     Dosage: 1.7 G
     Dates: start: 20110903, end: 20110906
  38. AMIKLIN [Concomitant]
     Dosage: 250 MG DAILY
     Dates: start: 20110903, end: 20110908

REACTIONS (2)
  - Febrile bone marrow aplasia [Recovered/Resolved]
  - Device related infection [Recovered/Resolved]
